FAERS Safety Report 13605544 (Version 1)
Quarter: 2017Q2

REPORT INFORMATION
  Report Type: Spontaneous
  Country: US (occurrence: US)
  Receive Date: 20170602
  Receipt Date: 20170602
  Transmission Date: 20170830
  Serious: No
  Sender: FDA-Public Use
  Company Number: US-NOVEN PHARMACEUTICALS, INC.-US2016000641

PATIENT

DRUGS (2)
  1. DAYTRANA [Suspect]
     Active Substance: METHYLPHENIDATE
     Indication: ATTENTION DEFICIT/HYPERACTIVITY DISORDER
     Dosage: UNK, UNKNOWN
     Route: 062
     Dates: start: 2013, end: 201604
  2. KEPPRA [Concomitant]
     Active Substance: LEVETIRACETAM
     Indication: EPILEPSY

REACTIONS (4)
  - Psychomotor hyperactivity [Unknown]
  - Drug dose omission [Not Recovered/Not Resolved]
  - Disturbance in attention [Unknown]
  - Educational problem [Unknown]

NARRATIVE: CASE EVENT DATE: 201604
